FAERS Safety Report 25103833 (Version 1)
Quarter: 2025Q1

REPORT INFORMATION
  Report Type: Spontaneous
  Country: US (occurrence: US)
  Receive Date: 20250321
  Receipt Date: 20250321
  Transmission Date: 20250408
  Serious: Yes (Other)
  Sender: AMGEN
  Company Number: US-AMGEN-USASP2025050271

PATIENT

DRUGS (1)
  1. BEVACIZUMAB [Suspect]
     Active Substance: BEVACIZUMAB
     Indication: Glioma
     Dosage: 10 MILLIGRAM/KILOGRAM, Q2WK
     Route: 065

REACTIONS (13)
  - Radiation thrombocytopenia [Unknown]
  - Radiation neutropenia [Unknown]
  - Radiation leukopenia [Unknown]
  - Radiation anaemia [Unknown]
  - Neurotoxicity [Unknown]
  - Radiation necrosis [Unknown]
  - Motor dysfunction [Unknown]
  - Urinary incontinence [Unknown]
  - Neurologic neglect syndrome [Unknown]
  - Aphasia [Unknown]
  - Lymphopenia [Unknown]
  - Dysarthria [Unknown]
  - Off label use [Unknown]
